FAERS Safety Report 16140147 (Version 2)
Quarter: 2019Q2

REPORT INFORMATION
  Report Type: Spontaneous
  Country: JP (occurrence: JP)
  Receive Date: 20190401
  Receipt Date: 20190430
  Transmission Date: 20190711
  Serious: Yes (Other)
  Sender: FDA-Public Use
  Company Number: PHJP2019JP003578

PATIENT
  Age: 47 Year
  Sex: Male

DRUGS (1)
  1. GLIVEC [Suspect]
     Active Substance: IMATINIB MESYLATE
     Indication: GASTROINTESTINAL STROMAL TUMOUR
     Dosage: 400 MG, UNK
     Route: 048

REACTIONS (5)
  - Vascular insufficiency [Unknown]
  - Gastrointestinal tract mucosal discolouration [Unknown]
  - Gastrointestinal necrosis [Unknown]
  - Metastases to bladder [Unknown]
  - Metastases to prostate [Unknown]

NARRATIVE: CASE EVENT DATE: 201805
